FAERS Safety Report 4823235-2 (Version None)
Quarter: 2005Q4

REPORT INFORMATION
  Report Type: 
  Country: None (occurrence: None)
  Receive Date: 20051108
  Receipt Date: 20051108
  Transmission Date: 20060501
  Serious: No
  Sender: FDA-Public Use
  Company Number: None

PATIENT
  Age: 80 Year
  Sex: Male
  Weight: 65.7716 kg

DRUGS (1)
  1. FLOMAX [Suspect]
     Indication: URINE FLOW DECREASED
     Dosage: 0.4 MG P.O. DAILY
     Route: 048
     Dates: start: 20041004

REACTIONS (3)
  - CATARACT OPERATION COMPLICATION [None]
  - IRIS DISORDER [None]
  - MIOSIS [None]
